FAERS Safety Report 16274587 (Version 3)
Quarter: 2019Q2

REPORT INFORMATION
  Report Type: Spontaneous
  Country: DE (occurrence: DE)
  Receive Date: 20190506
  Receipt Date: 20190621
  Transmission Date: 20190711
  Serious: Yes (Hospitalization)
  Sender: FDA-Public Use
  Company Number: DE-ABBVIE-19P-062-2770989-00

PATIENT
  Sex: Male
  Weight: 80 kg

DRUGS (4)
  1. KREON [Suspect]
     Active Substance: PANCRELIPASE
     Dosage: FOR LUNCH
     Route: 048
  2. KREON [Suspect]
     Active Substance: PANCRELIPASE
     Indication: PANCREATIC FAILURE
     Dosage: FOR SNACKS BETWEEN MEALS
     Route: 048
     Dates: start: 201701
  3. KREON [Suspect]
     Active Substance: PANCRELIPASE
     Dosage: FOR BREAKFAST AND DINNER
     Route: 048
  4. KREON [Suspect]
     Active Substance: PANCRELIPASE
     Indication: PANCREATIC OPERATION
     Route: 048
     Dates: start: 201701

REACTIONS (3)
  - Pancreatitis chronic [Unknown]
  - Diarrhoea [Unknown]
  - Gastritis [Unknown]

NARRATIVE: CASE EVENT DATE: 201903
